FAERS Safety Report 17889107 (Version 1)
Quarter: 2020Q2

REPORT INFORMATION
  Report Type: Spontaneous
  Country: US (occurrence: US)
  Receive Date: 20200612
  Receipt Date: 20200612
  Transmission Date: 20200714
  Serious: Yes (Death, Hospitalization)
  Sender: FDA-Public Use
  Company Number: US-SCIEGEN-2020SCILIT00117

PATIENT
  Age: 58 Year
  Sex: Male

DRUGS (1)
  1. HYDRALAZINE HYDROCHLORIDE. [Suspect]
     Active Substance: HYDRALAZINE HYDROCHLORIDE
     Indication: PRODUCT USED FOR UNKNOWN INDICATION
     Route: 065

REACTIONS (7)
  - Diabetic nephropathy [Unknown]
  - Mental status changes [Unknown]
  - Cerebrovascular accident [Fatal]
  - Respiratory distress [Unknown]
  - Acute kidney injury [Unknown]
  - Glomerulosclerosis [Unknown]
  - Anti-neutrophil cytoplasmic antibody positive vasculitis [Unknown]
